FAERS Safety Report 16975081 (Version 4)
Quarter: 2019Q4

REPORT INFORMATION
  Report Type: Spontaneous
  Country: US (occurrence: US)
  Receive Date: 20191030
  Receipt Date: 20191224
  Transmission Date: 20200122
  Serious: Yes (Other)
  Sender: FDA-Public Use
  Company Number: US-SA-2019SA291230

PATIENT
  Age: 39 Year
  Sex: Female
  Weight: 115.67 kg

DRUGS (24)
  1. FLUCONAZOLE. [Concomitant]
     Active Substance: FLUCONAZOLE
     Dosage: 150 MG, UNK
     Dates: start: 20180827
  2. METRONIDAZOLE. [Concomitant]
     Active Substance: METRONIDAZOLE
     Dosage: 500 UNK
     Dates: start: 20180809
  3. ACYCLOVIR [ACICLOVIR] [Concomitant]
     Active Substance: ACYCLOVIR
     Dosage: 1 DF, BID
     Route: 048
     Dates: start: 20190923
  4. MYRBETRIQ [Concomitant]
     Active Substance: MIRABEGRON
     Dosage: 50 MG, EXTENDED RELEASE
     Route: 065
     Dates: start: 20191102
  5. SULFAMETHOXAZOLE [Concomitant]
     Active Substance: SULFAMETHOXAZOLE
     Dosage: UNK UNK, BID
     Route: 048
     Dates: start: 20190823
  6. AZITHROMYCIN ANHYDROUS. [Concomitant]
     Active Substance: AZITHROMYCIN ANHYDROUS
     Dosage: 250 MG, UNK
     Dates: start: 20181226
  7. NAPROXEN. [Concomitant]
     Active Substance: NAPROXEN
     Dosage: 500 MG, UNK
     Dates: start: 20170821
  8. VESICARE [Concomitant]
     Active Substance: SOLIFENACIN SUCCINATE
     Dosage: 5 MG, UNK
     Dates: start: 20170114
  9. LEMTRADA [Suspect]
     Active Substance: ALEMTUZUMAB
     Indication: MULTIPLE SCLEROSIS
     Dosage: 12 MG, QD
     Route: 041
     Dates: start: 201908, end: 20190815
  10. AMLODIPINE [Concomitant]
     Active Substance: AMLODIPINE BESYLATE
     Dosage: 5 MG, UNK
     Route: 065
     Dates: start: 20191111
  11. SOLIFENACIN [Concomitant]
     Active Substance: SOLIFENACIN
     Dosage: 10 MG, UNK
     Route: 065
     Dates: start: 20190919
  12. IBU [Concomitant]
     Active Substance: IBUPROFEN
     Dosage: 800 MG
  13. RANITIDINE. [Concomitant]
     Active Substance: RANITIDINE
     Dosage: UNK UNK, QD
     Route: 048
     Dates: start: 20190806
  14. DOXAZOSIN [Concomitant]
     Active Substance: DOXAZOSIN MESYLATE
     Dosage: 1 MG, UNK
     Dates: start: 20180511
  15. METRONIDAZOLE. [Concomitant]
     Active Substance: METRONIDAZOLE
     Dosage: 250 MG, UNK
     Dates: start: 20181027
  16. NYSTATIN. [Concomitant]
     Active Substance: NYSTATIN
     Dosage: 100,000 UNIT/GRAM
     Dates: start: 20181027
  17. FLUTICASONE PROPIONATE. [Concomitant]
     Active Substance: FLUTICASONE PROPIONATE
     Dosage: 50 UG/ACTUATION NASAL SPRAY,SUSPENSION
     Route: 065
     Dates: start: 20190904
  18. IBUPROFEN. [Concomitant]
     Active Substance: IBUPROFEN
     Dosage: 600 MG, UNK
     Route: 065
     Dates: start: 20190423
  19. ATENOLOL. [Concomitant]
     Active Substance: ATENOLOL
     Dosage: 25 MG, UNK
     Dates: start: 20170827
  20. VARIVAX [AESCULUS HIPPOCASTANUM] [Concomitant]
     Dosage: 1,350 UNIT/0.5 ML SUBCUTANEOUS SUSPENSION
  21. AZELASTINE. [Concomitant]
     Active Substance: AZELASTINE HYDROCHLORIDE
     Dosage: 205.5 UG (0.15%)
     Route: 065
     Dates: start: 20190522
  22. HYDROXYZINE [Concomitant]
     Active Substance: HYDROXYZINE HYDROCHLORIDE
     Dosage: 50 MG, QD
     Route: 048
     Dates: start: 20190903
  23. CEPHALEXINE [Concomitant]
     Active Substance: CEPHALEXIN
     Dosage: 500 MG, UNK
     Route: 065
     Dates: start: 20190423
  24. METOPROLOL SUCCINATE. [Concomitant]
     Active Substance: METOPROLOL SUCCINATE
     Dosage: 50 MG, EXTENDED RELEASE 24 HR
     Route: 065
     Dates: start: 20191019

REACTIONS (19)
  - Urinary incontinence [Unknown]
  - Cholecystitis [Unknown]
  - Constipation [Unknown]
  - Confusional state [Unknown]
  - Autoimmune disorder [Unknown]
  - Thrombocytopenia [Recovering/Resolving]
  - Disturbance in attention [Unknown]
  - Hypertension [Unknown]
  - Muscular weakness [Unknown]
  - Platelet count decreased [Recovering/Resolving]
  - Memory impairment [Unknown]
  - Incontinence [Unknown]
  - Fatigue [Unknown]
  - Listeriosis [Unknown]
  - Contusion [Unknown]
  - Hypoaesthesia [Unknown]
  - Upper-airway cough syndrome [Unknown]
  - Anxiety [Unknown]
  - Oedema peripheral [Recovering/Resolving]

NARRATIVE: CASE EVENT DATE: 2019
